FAERS Safety Report 12008023 (Version 1)
Quarter: 2016Q1

REPORT INFORMATION
  Report Type: Report from Study
  Country: US (occurrence: US)
  Receive Date: 20160205
  Receipt Date: 20160205
  Transmission Date: 20160526
  Serious: No
  Sender: FDA-Public Use
  Company Number: US-BIOGEN-2015BI017902

PATIENT
  Sex: Female

DRUGS (1)
  1. AVONEX [Suspect]
     Active Substance: INTERFERON BETA-1A
     Indication: MULTIPLE SCLEROSIS
     Route: 030

REACTIONS (6)
  - Pain [Recovered/Resolved]
  - Pallor [Recovered/Resolved]
  - Multiple sclerosis [Recovered/Resolved]
  - Pyrexia [Recovered/Resolved]
  - Drug intolerance [Unknown]
  - Feeling abnormal [Recovered/Resolved]
